FAERS Safety Report 6339427-X (Version None)
Quarter: 2009Q3

REPORT INFORMATION
  Report Type: 
  Country: None (occurrence: None)
  Receive Date: 20090903
  Receipt Date: 20090825
  Transmission Date: 20100115
  Serious: Yes (Hospitalization, Other)
  Sender: FDA-Public Use
  Company Number: US-ELI_LILLY_AND_COMPANY-US200907005384

PATIENT
  Sex: Female

DRUGS (4)
  1. HUMALOG [Suspect]
     Dosage: 10 U, 3/D
     Route: 058
     Dates: start: 20010101
  2. LEXAPRO [Concomitant]
     Dosage: UNK, UNK
     Dates: start: 20010101
  3. LEVEMIR [Concomitant]
  4. NEURONTIN [Concomitant]
     Dates: start: 20090101

REACTIONS (4)
  - BLOOD GLUCOSE DECREASED [None]
  - BLOOD GLUCOSE INCREASED [None]
  - HYPOGLYCAEMIC SEIZURE [None]
  - INAPPROPRIATE SCHEDULE OF DRUG ADMINISTRATION [None]
